FAERS Safety Report 17916860 (Version 1)
Quarter: 2020Q2

REPORT INFORMATION
  Report Type: Spontaneous
  Country: US (occurrence: US)
  Receive Date: 20200619
  Receipt Date: 20200619
  Transmission Date: 20200714
  Serious: Yes (Death)
  Sender: FDA-Public Use
  Company Number: US-PFIZER INC-2019303928

PATIENT
  Age: 83 Year
  Sex: Female

DRUGS (11)
  1. LASIX [Concomitant]
     Active Substance: FUROSEMIDE
     Dosage: 80 MG, 2X/DAY
     Route: 048
  2. LEVOTHYROXINE SODIUM. [Concomitant]
     Active Substance: LEVOTHYROXINE SODIUM
     Indication: HYPOTHYROIDISM
     Dosage: 137 UG, DAILY
     Route: 048
     Dates: start: 20131217
  3. SIMVASTATIN. [Concomitant]
     Active Substance: SIMVASTATIN
     Indication: ROUTINE HEALTH MAINTENANCE
     Dosage: 20 MG, DAILY (TAKE 1 TABLET DAILY IN THE EVENING)
     Route: 048
     Dates: start: 20131217
  4. ALBUTEROL SULFATE. [Concomitant]
     Active Substance: ALBUTEROL SULFATE
     Dosage: 1 DF, AS NEEDED
     Dates: start: 20190509
  5. CEROVITE [Concomitant]
     Active Substance: FOLIC ACID\IRON
     Dosage: 1 DF, DAILY
     Route: 048
     Dates: start: 20190509
  6. VYNDAQEL [Suspect]
     Active Substance: TAFAMIDIS MEGLUMINE
     Indication: CARDIAC AMYLOIDOSIS
     Dosage: 80 MG, 1X/DAY
     Route: 048
  7. ELIQUIS [Concomitant]
     Active Substance: APIXABAN
     Indication: ATRIAL FLUTTER
     Dosage: 2.5 MG, 2X/DAY
     Route: 048
     Dates: start: 20180314
  8. ACETAMINOPHEN. [Concomitant]
     Active Substance: ACETAMINOPHEN
     Dosage: 325 MG, AS NEEDED (TAKE 1 TO 2 TABLETS EVERY 4 HOURS AS NEEDED)
     Dates: start: 20190509
  9. SYMBICORT [Concomitant]
     Active Substance: BUDESONIDE\FORMOTEROL FUMARATE DIHYDRATE
     Indication: ASTHMA
     Dosage: 1 DF, 2X/DAY (BUDESONIDE 160 MCG + FORMOTEROL FUMARATE DIHYDRATE 4.5 MCG) (INHALE 1 PUFFS EVERY TWEL
     Dates: start: 20140123
  10. VYNDAQEL [Suspect]
     Active Substance: TAFAMIDIS MEGLUMINE
     Indication: AMYLOIDOSIS
  11. ASPERCREME [LIDOCAINE] [Concomitant]
     Active Substance: LIDOCAINE
     Dosage: UNK, AS NEEDED
     Dates: start: 20190509

REACTIONS (1)
  - Death [Fatal]
